FAERS Safety Report 8314179-2 (Version None)
Quarter: 2012Q2

REPORT INFORMATION
  Report Type: 
  Country: None (occurrence: None)
  Receive Date: 20120426
  Receipt Date: 20120417
  Transmission Date: 20120825
  Serious: Yes (Hospitalization, Other)
  Sender: FDA-Public Use
  Company Number: PHEH2012US005324

PATIENT
  Sex: Male
  Weight: 100 kg

DRUGS (17)
  1. ILARIS [Suspect]
     Dosage: 150 MG, EVERY 8 WEEKS
     Route: 058
     Dates: start: 20111010
  2. ALLOPURINOL [Concomitant]
  3. GABAPENTIN [Concomitant]
  4. ASPIRIN [Concomitant]
  5. LISINOPRIL AND HYDROCHLOROTHIAZIDE [Concomitant]
  6. AMLODIPINE [Concomitant]
  7. LEVOTHYROXINE SODIUM [Concomitant]
  8. TRILIPIX [Concomitant]
  9. TAMSULOSIN HCL [Concomitant]
  10. ILARIS [Suspect]
     Indication: FAMILIAL COLD AUTOINFLAMMATORY SYNDROME
     Dosage: 150 MG, Q2MO
     Route: 058
     Dates: start: 20110518
  11. ILARIS [Suspect]
     Dosage: 150 MG, EVERY 8 WEEKS
     Route: 058
     Dates: start: 20110613
  12. ILARIS [Suspect]
     Dosage: 150 MG, EVERY 8 WEEKS
     Route: 058
     Dates: start: 20110815
  13. NIASPAN [Concomitant]
  14. CRESTOR [Concomitant]
  15. ALPRAZOLAM [Concomitant]
  16. METOPROLOL TARTRATE [Concomitant]
  17. RANITIDINE [Concomitant]

REACTIONS (2)
  - IMPAIRED HEALING [None]
  - POSTOPERATIVE THORACIC PROCEDURE COMPLICATION [None]
